FAERS Safety Report 9515947 (Version 3)
Quarter: 2013Q4

REPORT INFORMATION
  Report Type: Spontaneous
  Country: JP (occurrence: JP)
  Receive Date: 20130911
  Receipt Date: 20131211
  Transmission Date: 20140711
  Serious: Yes (Other)
  Sender: FDA-Public Use
  Company Number: JP-JNJFOC-20130803407

PATIENT
  Age: 43 Year
  Sex: Male
  Weight: 83 kg

DRUGS (5)
  1. REMICADE [Suspect]
     Indication: PSORIASIS
     Route: 042
     Dates: start: 20120803
  2. REMICADE [Suspect]
     Indication: PSORIASIS
     Route: 042
     Dates: start: 20130719, end: 20130719
  3. URINORM [Concomitant]
     Indication: HYPERURICAEMIA
     Route: 048
     Dates: start: 20121012
  4. SOLU-CORTEF [Concomitant]
     Indication: PREMEDICATION
     Route: 065
     Dates: start: 20130719, end: 20130719
  5. TALION [Concomitant]
     Indication: PRURITUS
     Route: 048

REACTIONS (1)
  - Infusion related reaction [Recovering/Resolving]
